FAERS Safety Report 8189979-2 (Version None)
Quarter: 2012Q1

REPORT INFORMATION
  Report Type: 
  Country: None (occurrence: None)
  Receive Date: 20120305
  Receipt Date: 20120221
  Transmission Date: 20120608
  Serious: Yes (Death)
  Sender: FDA-Public Use
  Company Number: JP-2011-13016

PATIENT
  Age: 77 Year
  Sex: Male

DRUGS (6)
  1. ATORVASTATIN CALCIUM HYDRATE (ATORVASTATIN CALCIUM HYDRATE) [Concomitant]
  2. DEXTRAN, DERIATIVES AND PREPARATIONS (DEXTRAN, DERIATIVES AND PREPARAT [Concomitant]
  3. EDARAVONE (EDARAVONE) [Concomitant]
  4. PLETAL [Suspect]
     Indication: BRAIN STEM INFARCTION
     Dosage: ORAL
     Route: 048
     Dates: start: 20090101
  5. ASPIRIN [Concomitant]
  6. HEPARIN AND PREPARATIONS (HEPARIN AND PREPARATIONS) [Concomitant]

REACTIONS (4)
  - RESPIRATORY FAILURE [None]
  - CEREBRAL INFARCTION [None]
  - DISEASE PROGRESSION [None]
  - PNEUMONIA ASPIRATION [None]
